FAERS Safety Report 6601799-6 (Version None)
Quarter: 2010Q1

REPORT INFORMATION
  Report Type: 
  Country: None (occurrence: None)
  Receive Date: 20100218
  Receipt Date: 20100202
  Transmission Date: 20100710
  Serious: Yes (Life-Threatening, Hospitalization)
  Sender: FDA-Public Use
  Company Number: AUR-APL-2010-00451

PATIENT
  Age: 81 Year
  Sex: Male
  Weight: 58 kg

DRUGS (8)
  1. ATENOLOL [Suspect]
     Indication: HYPERTENSION
     Dosage: 50MG DAILY ORAL
     Route: 048
     Dates: start: 19900101, end: 20080819
  2. METFORMIN HCL [Suspect]
     Indication: TYPE 2 DIABETES MELLITUS
     Dosage: 1000MG BID ORAL
     Route: 048
     Dates: start: 20000101, end: 20080813
  3. GLIMEPIRIDE [Suspect]
     Indication: TYPE 2 DIABETES MELLITUS
     Dosage: 2 MG DAILY ORAL
     Route: 048
     Dates: start: 20020101, end: 20080813
  4. ISOSORBIDE DINITRATE [Concomitant]
  5. FUROSEMIDE [Concomitant]
  6. SPIRONOLACTONE [Concomitant]
  7. FERROUS GLYCINE SULFATE [Concomitant]
  8. MEDAZEPAM [Concomitant]

REACTIONS (3)
  - AGITATION [None]
  - HYPOGLYCAEMIA [None]
  - PERSONALITY CHANGE [None]
